FAERS Safety Report 16523747 (Version 22)
Quarter: 2022Q1

REPORT INFORMATION
  Report Type: Report from Study
  Country: GB (occurrence: NL)
  Receive Date: 20190702
  Receipt Date: 20220304
  Transmission Date: 20220423
  Serious: Yes (Hospitalization, Other)
  Sender: FDA-Public Use
  Company Number: None

PATIENT
  Age: 47 Year
  Sex: Female

DRUGS (55)
  1. TRASTUZUMAB [Suspect]
     Active Substance: TRASTUZUMAB
     Indication: HER2 positive breast cancer
     Dosage: 619.5 MILLIGRAM, Q3W, LOADING DOSE/START DATE:23-APR-2015
     Route: 041
     Dates: start: 20150423, end: 20150423
  2. TRASTUZUMAB [Suspect]
     Active Substance: TRASTUZUMAB
     Dosage: 483 MILLIGRAM, Q3W, MAINTAINANCE DOSE/START DATE:15-MAY-2015
     Route: 042
     Dates: end: 20160309
  3. TRASTUZUMAB [Suspect]
     Active Substance: TRASTUZUMAB
     Dosage: 630 MILLIGRAM, Q3W/ START DATE:10-JUL-2015
     Route: 042
     Dates: start: 20150710, end: 20150710
  4. TRASTUZUMAB [Suspect]
     Active Substance: TRASTUZUMAB
     Dosage: 441 MILLIGRAM, Q3W/ START DATE: 08-AUG-2015
     Route: 042
     Dates: start: 20150808, end: 20160127
  5. TRASTUZUMAB [Suspect]
     Active Substance: TRASTUZUMAB
     Dosage: 140 MILLIGRAM, Q3W/ START DATE:08-FEB-2017
     Route: 042
  6. TRASTUZUMAB [Suspect]
     Active Substance: TRASTUZUMAB
     Dosage: 260 MILLIGRAM, Q3W/ START DATE: 04-APR-2016
     Route: 042
     Dates: end: 20161102
  7. TRASTUZUMAB [Suspect]
     Active Substance: TRASTUZUMAB
     Dosage: 180 MILLIGRAM, Q3W/ START DATE: 08-FEB-2017
     Route: 042
  8. TRASTUZUMAB [Suspect]
     Active Substance: TRASTUZUMAB
     Dosage: 483 MG, EVERY 3 WEEKS (MAINTAINANCE DOSE)/START DATE:15-MAY-2015
     Route: 042
     Dates: start: 20150515, end: 20150605
  9. TRASTUZUMAB [Suspect]
     Active Substance: TRASTUZUMAB
     Dosage: 483 MG, EVERY 3 WEEKS (MAINTAINANCE DOSE)/START DATE: 15-MAY-2015
     Route: 042
     Dates: end: 20160605
  10. VINORELBINE [Suspect]
     Active Substance: VINORELBINE TARTRATE
     Indication: Product used for unknown indication
     Dosage: UNK
     Route: 065
  11. DOCETAXEL [Suspect]
     Active Substance: DOCETAXEL
     Indication: HER2 positive breast cancer
     Dosage: 140 MILLIGRAM, Q3W (NUMBER OF CYCLE 6)/ START DATE:24-APR-2015
     Route: 042
     Dates: start: 20150424, end: 20150605
  12. DOCETAXEL [Suspect]
     Active Substance: DOCETAXEL
     Dosage: 150 MILLIGRAM, Q3W/ START DATE:15-MAY-2015
     Route: 042
     Dates: start: 20150515, end: 20150515
  13. DOCETAXEL [Suspect]
     Active Substance: DOCETAXEL
     Dosage: 140 MILLIGRAM, Q3W/ START DATE: 05-JUN-2015
     Route: 042
     Dates: start: 20150605, end: 20150605
  14. DOCETAXEL [Suspect]
     Active Substance: DOCETAXEL
     Dosage: 100 MILLIGRAM, Q3W/ START DATE: 10-JUL-2015
     Route: 042
     Dates: start: 20150710, end: 20150826
  15. DOCETAXEL [Suspect]
     Active Substance: DOCETAXEL
     Dosage: UNK
     Route: 065
  16. PACLITAXEL [Suspect]
     Active Substance: PACLITAXEL
     Indication: Product used for unknown indication
     Dosage: UNK
     Route: 065
  17. PACLITAXEL [Suspect]
     Active Substance: PACLITAXEL
     Dosage: UNK
     Route: 065
  18. PERTUZUMAB [Suspect]
     Active Substance: PERTUZUMAB
     Indication: HER2 positive breast cancer
     Dosage: 420 MILLIGRAM, Q3W, MAINTAINANCE DOSE/START DATE: 15-MAY-2015
     Route: 042
     Dates: start: 20150515, end: 20160309
  19. PERTUZUMAB [Suspect]
     Active Substance: PERTUZUMAB
     Dosage: 840 MILLIGRAM (LOADING DOSE)/ START DATE: 23-APR-2015
     Route: 042
     Dates: start: 20150423
  20. ADO-TRASTUZUMAB EMTANSINE [Suspect]
     Active Substance: ADO-TRASTUZUMAB EMTANSINE
     Indication: HER2 positive breast cancer
     Dosage: 260 MILLIGRAM, Q3W (START 04-APR-2016, END 02-NOV-2016)
     Route: 042
  21. ADO-TRASTUZUMAB EMTANSINE [Suspect]
     Active Substance: ADO-TRASTUZUMAB EMTANSINE
     Dosage: 180 MILLIGRAM, Q3W (START 08-FEB-2017, END 05-JUL-2017)
     Route: 042
  22. ADO-TRASTUZUMAB EMTANSINE [Suspect]
     Active Substance: ADO-TRASTUZUMAB EMTANSINE
     Dosage: 180 MILLIGRAM, Q3W (START 08-FEB-2017, END 05-JUL-2017)
     Route: 042
     Dates: start: 20170208, end: 20170705
  23. ADO-TRASTUZUMAB EMTANSINE [Suspect]
     Active Substance: ADO-TRASTUZUMAB EMTANSINE
     Dosage: 260 MILLIGRAM, Q3W (START 04-APR-2016, END 02-NOV-2016)
     Route: 042
     Dates: start: 20160404, end: 20161102
  24. HERCEPTIN [Suspect]
     Active Substance: TRASTUZUMAB
     Indication: HER2 positive breast cancer
     Dosage: 619.5 MILLIGRAM/ START DATE: 23-APR-2015
     Route: 042
     Dates: end: 20150423
  25. HERCEPTIN [Suspect]
     Active Substance: TRASTUZUMAB
     Dosage: 441 MILLIGRAM,Q3W(MAINTAINANCE DOSE)START:15-MAY-2015
     Route: 042
     Dates: end: 20160309
  26. ERIBULIN MESYLATE [Suspect]
     Active Substance: ERIBULIN MESYLATE
     Indication: Product used for unknown indication
     Dosage: UNK
     Route: 065
  27. TAXOL [Suspect]
     Active Substance: PACLITAXEL
     Indication: Product used for unknown indication
     Dosage: UNK
     Route: 065
  28. ABRAXANE [Suspect]
     Active Substance: PACLITAXEL
     Indication: Product used for unknown indication
     Dosage: UNK
     Route: 065
  29. TAXOTERE [Suspect]
     Active Substance: DOCETAXEL
     Indication: Product used for unknown indication
     Dosage: UNK
     Route: 065
  30. HALAVEN [Suspect]
     Active Substance: ERIBULIN MESYLATE
     Indication: Product used for unknown indication
     Dosage: UNK
     Route: 065
  31. TRASTUZUMAB [Suspect]
     Active Substance: TRASTUZUMAB
     Indication: Product used for unknown indication
     Dosage: 483 MILLIGRAM, Q3W (MAINTAINANCE DOSE)/START DATE:15-MAY-2015
     Route: 042
     Dates: end: 20150605
  32. TRASTUZUMAB [Suspect]
     Active Substance: TRASTUZUMAB
     Dosage: 630 MILLIGRAM, Q3W (630 MG, EVERY 3 WEEKS)/START DATE:10-JUL-2015
     Route: 042
     Dates: end: 20150710
  33. TRASTUZUMAB [Suspect]
     Active Substance: TRASTUZUMAB
     Dosage: 230 MILLIGRAM/ START DATE:23-APR-2015
     Route: 042
  34. NAVELBINE [Suspect]
     Active Substance: VINORELBINE TARTRATE
     Indication: Product used for unknown indication
     Dosage: UNK
     Route: 065
  35. FLUCLOXACILLIN [Concomitant]
     Active Substance: FLUCLOXACILLIN
     Indication: Vascular device infection
     Dosage: 500 MILLIGRAM, QD (START 19-SEP-2016, END 22-SEP-2016)
     Route: 048
  36. FLUCLOXACILLIN [Concomitant]
     Active Substance: FLUCLOXACILLIN
     Dosage: 1 GRAM, QD (START 23-SEP-2016, END 29-SEP-2016)
     Route: 048
  37. LOPERAMIDE [Concomitant]
     Active Substance: LOPERAMIDE
     Indication: Diarrhoea
     Dosage: 2 MILLIGRAM (START JUL-2015)
     Route: 048
  38. NAPROXEN [Concomitant]
     Active Substance: NAPROXEN
     Indication: Pain in extremity
     Dosage: 500 MILLIGRAM, QD (START MAY-2016, END JUN-2016)
     Route: 048
  39. BEROCCA [Concomitant]
     Active Substance: VITAMINS
     Dosage: UNK, DOSE: 1
     Route: 048
  40. GABAPENTIN [Concomitant]
     Active Substance: GABAPENTIN
     Indication: Neuropathy peripheral
     Dosage: 300 MILLIGRAM, QD (START NOV-2016)
     Route: 048
  41. AMOXICILLIN [Concomitant]
     Active Substance: AMOXICILLIN
     Indication: Lower respiratory tract infection
     Dosage: UNK (START 03-AUG-2016, END 12-AUG-2016)
     Route: 048
  42. DENOSUMAB [Concomitant]
     Active Substance: DENOSUMAB
     Indication: Product used for unknown indication
     Dosage: 120 MILLIGRAM, Q3W / START DATE: 15-MAY-2015
     Route: 058
  43. DENOSUMAB [Concomitant]
     Active Substance: DENOSUMAB
     Dosage: 120 MILLIGRAM, 6 WEEK/ START DATE: 18-MAY-2016
     Route: 058
     Dates: start: 20160518, end: 20180907
  44. AMITRIPTYLINE [Concomitant]
     Active Substance: AMITRIPTYLINE
     Indication: Product used for unknown indication
     Dosage: 30 MILLIGRAM, QD/START DATE: OCT-2014
     Route: 048
  45. AMITRIPTYLINE [Concomitant]
     Active Substance: AMITRIPTYLINE
     Dosage: UNK
     Route: 065
  46. PIPERACILLIN SODIUM\TAZOBACTAM SODIUM [Concomitant]
     Active Substance: PIPERACILLIN SODIUM\TAZOBACTAM SODIUM
     Indication: Vascular device infection
     Dosage: 450 MILLIGRAM (START 14-APR-2016, END 14-APR-2016)
     Route: 042
  47. CALCIUM CARBONATE\CHOLECALCIFEROL [Concomitant]
     Active Substance: CALCIUM CARBONATE\CHOLECALCIFEROL
     Indication: Product used for unknown indication
     Dosage: 1 DOSAGE FORM, QD (1 TABLET, START 12-JUN-2015)
     Route: 048
  48. CALCIUM CARBONATE\CHOLECALCIFEROL [Concomitant]
     Active Substance: CALCIUM CARBONATE\CHOLECALCIFEROL
     Dosage: 1 DOSAGE FORM, QD (1 TABLET, START 12-JUN-2015)
     Route: 048
  49. CALCIUM CARBONATE\CHOLECALCIFEROL [Concomitant]
     Active Substance: CALCIUM CARBONATE\CHOLECALCIFEROL
     Dosage: 1 DF, 1X/DAY
     Route: 048
     Dates: start: 20150612
  50. FLUCONAZOLE [Concomitant]
     Active Substance: FLUCONAZOLE
     Indication: Stomatitis
     Dosage: 50 MILLIGRAM (START JUL-2015, END JUL-2015)
     Route: 048
  51. PYRIDOXINE [Concomitant]
     Active Substance: PYRIDOXINE
     Indication: Neuropathy peripheral
     Dosage: 50 MILLIGRAM (START NOV-2016)
     Route: 048
  52. FLUCLOXACILLIN [Concomitant]
     Active Substance: FLUCLOXACILLIN
     Indication: Cellulitis
     Dosage: 500 MILLIGRAM, QD (18-AUG-2016, END 25-AUG-2016)
     Route: 048
  53. AMOXICILLIN\CLAVULANATE POTASSIUM [Concomitant]
     Active Substance: AMOXICILLIN\CLAVULANATE POTASSIUM
     Indication: Vascular device infection
     Dosage: 1875 MILLIGRAM, Q3D (14-APR-2016, END 20-APR-2016)
     Route: 048
  54. Gelclair [Concomitant]
     Indication: Stomatitis
     Dosage: 40 MILLILITER (START JUL-2015, END JUL-2015)
     Route: 048
  55. BENZYDAMINE [Concomitant]
     Active Substance: BENZYDAMINE
     Indication: Stomatitis
     Dosage: UNK (START 03-AUG-2016)
     Route: 048

REACTIONS (23)
  - Palmar-plantar erythrodysaesthesia syndrome [Unknown]
  - Gastrooesophageal reflux disease [Recovered/Resolved]
  - Pain in extremity [Recovered/Resolved]
  - Cellulitis [Recovered/Resolved]
  - Pneumonia [Recovered/Resolved]
  - Back pain [Recovered/Resolved]
  - Vascular device infection [Recovered/Resolved]
  - Headache [Recovered/Resolved]
  - Nasopharyngitis [Recovered/Resolved]
  - Neuropathy peripheral [Recovering/Resolving]
  - Fungal infection [Recovered/Resolved]
  - Lower respiratory tract infection [Recovered/Resolved]
  - Pyrexia [Not Recovered/Not Resolved]
  - Peripheral sensory neuropathy [Not Recovered/Not Resolved]
  - Diarrhoea [Recovered/Resolved]
  - Nausea [Unknown]
  - Pain [Unknown]
  - Dyspnoea [Recovering/Resolving]
  - Constipation [Recovered/Resolved]
  - Stomatitis [Not Recovered/Not Resolved]
  - Decreased appetite [Recovered/Resolved]
  - Fatigue [Recovering/Resolving]
  - Alopecia [Recovered/Resolved]

NARRATIVE: CASE EVENT DATE: 20150601
